FAERS Safety Report 6212601-9 (Version None)
Quarter: 2009Q2

REPORT INFORMATION
  Report Type: 
  Country: None (occurrence: None)
  Receive Date: 20090602
  Receipt Date: 20090602
  Transmission Date: 20091009
  Serious: No
  Sender: FDA-Public Use
  Company Number: None

PATIENT
  Age: 54 Year
  Sex: Male
  Weight: 73.9 kg

DRUGS (1)
  1. DOCETAXEL [Suspect]
     Indication: BLOOD CALCIUM
     Dosage: 140 MG X1 IV
     Route: 042
     Dates: start: 20090527

REACTIONS (4)
  - CHEST DISCOMFORT [None]
  - GLOSSODYNIA [None]
  - ORAL PAIN [None]
  - THROAT TIGHTNESS [None]
